FAERS Safety Report 15450686 (Version 1)
Quarter: 2018Q4

REPORT INFORMATION
  Report Type: Report from Study
  Country: BR (occurrence: BR)
  Receive Date: 20181001
  Receipt Date: 20181001
  Transmission Date: 20190204
  Serious: Yes (Death, Hospitalization)
  Sender: FDA-Public Use
  Company Number: PHHY2018BR027317

PATIENT
  Sex: Male
  Weight: 75 kg

DRUGS (2)
  1. SANDOSTATIN LAR DEPOT [Suspect]
     Active Substance: OCTREOTIDE ACETATE
     Indication: DIARRHOEA
     Dosage: 60 MG, QMO
     Route: 030
     Dates: start: 2018
  2. SANDOSTATIN LAR DEPOT [Suspect]
     Active Substance: OCTREOTIDE ACETATE
     Indication: PANCREATIC NEUROENDOCRINE TUMOUR
     Dosage: 30 MG, QMO
     Route: 030
     Dates: start: 2013, end: 2018

REACTIONS (8)
  - Death [Fatal]
  - Diarrhoea [Recovering/Resolving]
  - Incorrect dose administered [Not Recovered/Not Resolved]
  - Emotional disorder [Unknown]
  - Malaise [Recovering/Resolving]
  - Product use in unapproved indication [Unknown]
  - Inflammatory bowel disease [Not Recovered/Not Resolved]
  - Dyspnoea [Not Recovered/Not Resolved]
